FAERS Safety Report 5076178-6 (Version None)
Quarter: 2006Q3

REPORT INFORMATION
  Report Type: 
  Country: None (occurrence: None)
  Receive Date: 20060725
  Receipt Date: 20060613
  Transmission Date: 20061208
  Serious: No
  Sender: FDA-Public Use
  Company Number: 200610891BWH

PATIENT
  Age: 64 Year
  Sex: Female

DRUGS (2)
  1. NEXAVAR [Suspect]
     Indication: RENAL CELL CARCINOMA STAGE UNSPECIFIED
     Dosage: SEE IMAGE
     Route: 048
     Dates: start: 20060203, end: 20060209
  2. NEXAVAR [Suspect]
     Indication: RENAL CELL CARCINOMA STAGE UNSPECIFIED
     Dosage: SEE IMAGE
     Route: 048
     Dates: start: 20060211

REACTIONS (2)
  - PRURITUS [None]
  - RASH [None]
